FAERS Safety Report 8000337 (Version 2)
Quarter: 2015Q2

REPORT INFORMATION
  Report Type: Report from Study
  Country: US (occurrence: US)
  Receive Date: 20110621
  Receipt Date: 20150622
  Transmission Date: 20150821
  Serious: Yes (Life-Threatening, Hospitalization)
  Sender: FDA-Public Use
  Company Number: US-ROCHE-783600

PATIENT
  Age: 62 Year

DRUGS (4)
  1. BEVACIZUMAB [Suspect]
     Active Substance: BEVACIZUMAB
     Indication: NON-SMALL CELL LUNG CANCER
     Dosage: CYCLE= 21 DAYS: (CYCLES: 01-06 AND 7+)
     Route: 042
  2. CARBOPLATIN. [Suspect]
     Active Substance: CARBOPLATIN
     Indication: NON-SMALL CELL LUNG CANCER
     Dosage: AUC=06 OVER 30 MIN ON DAY 01; CYCLE= 21 DAYS (CYCLES: 01-06)
     Route: 042
  3. IMC-A12 [Suspect]
     Active Substance: CIXUTUMUMAB
     Indication: NON-SMALL CELL LUNG CANCER
     Dosage: CYCLE= 21 DAYS; (CYCLES 01-06 AND 7+); OVER 01 HOUR ON DAYS 01, 08 AND 15
     Route: 042
  4. PACLITAXEL. [Suspect]
     Active Substance: PACLITAXEL
     Indication: NON-SMALL CELL LUNG CANCER
     Dosage: OVER 03 HOURS ON DAY 01; CYCLE= 21 DAYS (CYCLES: 01-06)
     Route: 042

REACTIONS (7)
  - Anaemia [Unknown]
  - Platelet count decreased [Unknown]
  - Muscular weakness [Unknown]
  - Dyspnoea [Unknown]
  - Fatigue [Unknown]
  - Neutrophil count decreased [Unknown]
  - Confusional state [Unknown]

NARRATIVE: CASE EVENT DATE: 20110206
